FAERS Safety Report 21624622 (Version 1)
Quarter: 2022Q4

REPORT INFORMATION
  Report Type: Spontaneous
  Country: BE (occurrence: BE)
  Receive Date: 20221121
  Receipt Date: 20221121
  Transmission Date: 20230113
  Serious: Yes (Other)
  Sender: FDA-Public Use
  Company Number: None

PATIENT
  Age: 65 Year
  Sex: Female
  Weight: 79 kg

DRUGS (13)
  1. BEMPEDOIC ACID\EZETIMIBE [Suspect]
     Active Substance: BEMPEDOIC ACID\EZETIMIBE
     Indication: Hypercholesterolaemia
     Dosage: 1 DF, QD (EVENING)
     Route: 048
     Dates: start: 20220701, end: 20220908
  2. OLMESARTAN MEDOXOMIL [Concomitant]
     Active Substance: OLMESARTAN MEDOXOMIL
     Indication: Product used for unknown indication
     Dosage: 1 DF, QD (AT BREAKFAST)
     Route: 065
  3. BISOPROLOL [Concomitant]
     Active Substance: BISOPROLOL
     Indication: Product used for unknown indication
     Dosage: 1 DF, QD (AT BREAKFAST)
     Route: 065
  4. BILASTINE [Concomitant]
     Active Substance: BILASTINE
     Indication: Product used for unknown indication
     Dosage: 1 DF, QD (BEFORE TO SLEEP) (30X1 PER DAY)
     Route: 065
  5. DILTIAZEM HYDROCHLORIDE [Concomitant]
     Active Substance: DILTIAZEM HYDROCHLORIDE
     Indication: Product used for unknown indication
     Dosage: 1 DF, QD (100, 1 X 1 VS.) DAILY (AT BREAKFAST)
     Route: 065
  6. SPIRONOLACTONE [Concomitant]
     Active Substance: SPIRONOLACTONE
     Indication: Product used for unknown indication
     Dosage: 0.5 DF, QD (AT BREAKFAST) (100, 1 X 1/2 TABLET DAILY)
     Route: 065
  7. PARACETAMOL TEVA [Concomitant]
     Indication: Product used for unknown indication
     Dosage: 1 DF, QD (AT BREAKFAST) (120, 1 X 1 TABLET DAILY)
     Route: 065
  8. EZETIMIBE [Concomitant]
     Active Substance: EZETIMIBE
     Indication: Product used for unknown indication
     Dosage: 1 DF, QD (100X1 1X1 1X1 DAILY (AFTER DINNER))
     Route: 065
  9. METFORMIN [Concomitant]
     Active Substance: METFORMIN HYDROCHLORIDE
     Indication: Product used for unknown indication
     Dosage: 1 DF 2 X 1 TV DAILY (BREAKFAST, DINNER), BID
     Route: 065
  10. FENOFIBRATE [Concomitant]
     Active Substance: FENOFIBRATE
     Indication: Product used for unknown indication
     Dosage: 1 DF, QD 1 X 1 TABLET DAILY (AT DINNER)(DANDRUFF TABLETS)
     Route: 065
  11. INDAPAMIDE EG [Concomitant]
     Indication: Product used for unknown indication
     Dosage: 1 DF, QD (60, 1 X 1 R.C. DAILY (BREAKFAST))
     Route: 065
  12. ASPIRIN [Concomitant]
     Active Substance: ASPIRIN
     Indication: Product used for unknown indication
     Dosage: 1 DF, QD (GASTRO-RESIST 168, 1 X 1 TABLET PER DAY (AT BREAKFAST))
     Route: 065
  13. PANTOMED D [Concomitant]
     Indication: Product used for unknown indication
     Dosage: 1 DF, QD (GASTRO-RESISTANT 100, 1 X 1 TABLET DAILY (AFTER BREAKFAST)
     Route: 065

REACTIONS (7)
  - Suicidal ideation [Recovering/Resolving]
  - Abdominal distension [Recovering/Resolving]
  - Decreased appetite [Recovering/Resolving]
  - Flatulence [Recovering/Resolving]
  - Muscular weakness [Recovering/Resolving]
  - Paraesthesia [Recovering/Resolving]
  - Fatigue [Recovering/Resolving]

NARRATIVE: CASE EVENT DATE: 20220801
